FAERS Safety Report 7153990-0 (Version None)
Quarter: 2010Q4

REPORT INFORMATION
  Report Type: 
  Country: None (occurrence: None)
  Receive Date: 20101213
  Receipt Date: 20101201
  Transmission Date: 20110411
  Serious: Yes (Hospitalization, Other)
  Sender: FDA-Public Use
  Company Number: CA-ELI_LILLY_AND_COMPANY-CA201009006255

PATIENT
  Age: 82 Year
  Sex: Female

DRUGS (19)
  1. FORTEO [Suspect]
     Indication: OSTEOPOROSIS
     Dosage: 20 UG, DAILY (1/D)
     Route: 058
     Dates: start: 20100111, end: 20100912
  2. COUMADIN [Concomitant]
  3. ARICEPT [Concomitant]
  4. LASIX [Concomitant]
  5. VENTOLIN [Concomitant]
  6. ADVAIR DISKUS 100/50 [Concomitant]
  7. IRON SULFATETHIAMIN COMPOUND TAB [Concomitant]
  8. LIPITOR [Concomitant]
  9. NITRO-DUR [Concomitant]
  10. MONOCOR [Concomitant]
  11. ALTACE [Concomitant]
  12. ASPIRIN [Concomitant]
  13. PAXIL [Concomitant]
  14. RISPERDAL [Concomitant]
  15. ATIVAN [Concomitant]
  16. CALCIUM W/VITAMIN D NOS [Concomitant]
  17. MOTILIUM [Concomitant]
  18. VITAMIN D [Concomitant]
  19. TRIDIL                             /00003201/ [Concomitant]

REACTIONS (3)
  - ACUTE MYOCARDIAL INFARCTION [None]
  - ACUTE PULMONARY OEDEMA [None]
  - CARDIAC FAILURE [None]
